FAERS Safety Report 8859401 (Version 1)
Quarter: 2012Q4

REPORT INFORMATION
  Report Type: Spontaneous
  Country: FR (occurrence: None)
  Receive Date: 20121022
  Receipt Date: 20121022
  Transmission Date: 20130627
  Serious: Yes (Hospitalization)
  Sender: FDA-Public Use
  Company Number: TPA2012A07291

PATIENT
  Age: 60 Year
  Sex: Female

DRUGS (4)
  1. ADENURIC [Suspect]
     Indication: HYPERURICEMIA
     Route: 048
     Dates: start: 20120614, end: 20120615
  2. COLCHICINE [Suspect]
     Dates: start: 20120614, end: 20120615
  3. MEBILOX (NEBIVOLOL HYDROCHLORIDE) [Concomitant]
  4. SERETIDE (FLUTICASONE PROPIONATE, SALMETEROL XINAFOATE) [Concomitant]

REACTIONS (4)
  - Amnesia [None]
  - Balance disorder [None]
  - Headache [None]
  - Dizziness [None]
